FAERS Safety Report 5275375-4 (Version None)
Quarter: 2007Q1

REPORT INFORMATION
  Report Type: 
  Country: None (occurrence: None)
  Receive Date: 20070326
  Receipt Date: 20070313
  Transmission Date: 20070707
  Serious: Yes (Other)
  Sender: FDA-Public Use
  Company Number: PHEH2007US03043

PATIENT
  Sex: Male

DRUGS (7)
  1. FOLIC ACID [Concomitant]
  2. PERCOCET [Concomitant]
  3. ALBUTEROL [Concomitant]
  4. RESTORIL [Concomitant]
  5. IMITREX [Concomitant]
  6. LOVENOX [Concomitant]
  7. EXJADE [Suspect]
     Indication: SERUM FERRITIN INCREASED
     Dosage: 1000MG, QD
     Route: 048
     Dates: start: 20061201, end: 20070228

REACTIONS (2)
  - CONDITION AGGRAVATED [None]
  - ORGAN FAILURE [None]
